FAERS Safety Report 12549715 (Version 1)
Quarter: 2016Q3

REPORT INFORMATION
  Report Type: Spontaneous
  Country: CN (occurrence: CN)
  Receive Date: 20160712
  Receipt Date: 20160712
  Transmission Date: 20161109
  Serious: Yes (Other)
  Sender: FDA-Public Use
  Company Number: CN-PFIZER INC-2016337394

PATIENT
  Age: 70 Year
  Sex: Male
  Weight: 69 kg

DRUGS (4)
  1. TIENAM [Suspect]
     Active Substance: CILASTATIN SODIUM\IMIPENEM
     Indication: INFECTION
     Dosage: 1 G, 3X/DAY
     Route: 041
     Dates: start: 20151217, end: 20151222
  2. DIFLUCAN [Suspect]
     Active Substance: FLUCONAZOLE
     Indication: FUNGAL INFECTION
     Dosage: 0.2 G, 1X/DAY
     Route: 041
     Dates: start: 20151217, end: 20151222
  3. BIAPENEM [Concomitant]
     Active Substance: BIAPENEM
     Indication: ANTI-INFECTIVE THERAPY
     Dosage: UNK
     Dates: start: 20151122, end: 20151217
  4. TEICOPLANIN [Concomitant]
     Active Substance: TEICOPLANIN
     Indication: ANTI-INFECTIVE THERAPY
     Dosage: UNK
     Dates: start: 20151122, end: 20151217

REACTIONS (2)
  - Condition aggravated [Recovering/Resolving]
  - Erythema multiforme [Recovering/Resolving]

NARRATIVE: CASE EVENT DATE: 20151220
